FAERS Safety Report 14197624 (Version 3)
Quarter: 2018Q1

REPORT INFORMATION
  Report Type: Report from Study
  Country: None (occurrence: BE)
  Receive Date: 20171116
  Receipt Date: 20180208
  Transmission Date: 20180508
  Serious: Yes (Hospitalization)
  Sender: FDA-Public Use
  Company Number: BE-ABBVIE-17K-013-2166226-00

PATIENT
  Sex: Male

DRUGS (4)
  1. DUODOPA [Suspect]
     Active Substance: CARBIDOPA\LEVODOPA
     Dosage: MD=0ML??CD=1.6ML/HR DURING 16HRS ??ED=0.7ML
     Route: 050
     Dates: start: 20170413
  2. DUODOPA [Suspect]
     Active Substance: CARBIDOPA\LEVODOPA
     Dosage: DOSES CONTINUOUSLY MONITORED AND ADAPTED
     Route: 050
     Dates: start: 20080601, end: 20170413
  3. DUODOPA [Suspect]
     Active Substance: CARBIDOPA\LEVODOPA
     Indication: PARKINSON^S DISEASE
     Route: 050
     Dates: start: 20080303, end: 20080401
  4. DUODOPA [Suspect]
     Active Substance: CARBIDOPA\LEVODOPA
     Dosage: MD=4ML??CD=3.3ML/HR DURING 16HRS ??ED=0.8ML
     Route: 050
     Dates: start: 20080401, end: 20080601

REACTIONS (6)
  - Gait disturbance [Unknown]
  - Dysstasia [Unknown]
  - Cognitive disorder [Unknown]
  - Confusional state [Unknown]
  - Dysphagia [Unknown]
  - Hypotension [Unknown]
